FAERS Safety Report 13717131 (Version 1)
Quarter: 2017Q3

REPORT INFORMATION
  Report Type: Spontaneous
  Country: US (occurrence: US)
  Receive Date: 20170704
  Receipt Date: 20170704
  Transmission Date: 20171127
  Serious: Yes (Disabling, Other)
  Sender: FDA-Public Use
  Company Number: None

PATIENT
  Age: 24 Year
  Sex: Male
  Weight: 99 kg

DRUGS (3)
  1. PROPANALOL [Concomitant]
  2. PAXIL [Suspect]
     Active Substance: PAROXETINE HYDROCHLORIDE
     Indication: DEPRESSION
     Route: 048
  3. SERQUEL [Concomitant]

REACTIONS (5)
  - Anger [None]
  - Anxiety [None]
  - Depression [None]
  - Pain [None]
  - Panic attack [None]

NARRATIVE: CASE EVENT DATE: 20170703
